FAERS Safety Report 9349194 (Version 1)
Quarter: 2013Q2

REPORT INFORMATION
  Report Type: Spontaneous
  Country: AU (occurrence: AU)
  Receive Date: 20130614
  Receipt Date: 20130614
  Transmission Date: 20140414
  Serious: Yes (Other)
  Sender: FDA-Public Use
  Company Number: AU-GLAXOSMITHKLINE-B0899211A

PATIENT
  Sex: Female

DRUGS (1)
  1. NICABATE P PATCH [Suspect]
     Indication: EX-TOBACCO USER
     Route: 062

REACTIONS (1)
  - Rectal haemorrhage [Unknown]
